FAERS Safety Report 7090322-0 (Version None)
Quarter: 2010Q4

REPORT INFORMATION
  Report Type: 
  Country: None (occurrence: None)
  Receive Date: 20101109
  Receipt Date: 20101028
  Transmission Date: 20110411
  Serious: Yes (Hospitalization)
  Sender: FDA-Public Use
  Company Number: DE-JNJFOC-20100807891

PATIENT
  Sex: Male

DRUGS (11)
  1. DURAGESIC-100 [Suspect]
     Indication: PAIN
     Dosage: INITIATED APPROXIMATELY 4 YEARS AGO
     Route: 062
  2. ALDACTONE [Concomitant]
     Route: 065
  3. FUROSEMID [Concomitant]
     Route: 065
  4. CONCOR [Concomitant]
     Route: 065
  5. UNKNOWN MEDICATION [Concomitant]
     Route: 065
  6. ALLOPURINOL [Concomitant]
     Route: 065
  7. MAGNESIUM [Concomitant]
     Route: 065
  8. SPIRIVA [Concomitant]
     Route: 065
  9. MARCUMAR [Concomitant]
     Route: 065
  10. NOVALGIN [Concomitant]
     Route: 065
  11. UNKNOWN MEDICATION [Concomitant]
     Route: 065

REACTIONS (1)
  - PULMONARY HYPERTENSION [None]
